FAERS Safety Report 19812626 (Version 2)
Quarter: 2021Q3

REPORT INFORMATION
  Report Type: Report from Study
  Country: KR (occurrence: KR)
  Receive Date: 20210909
  Receipt Date: 20210920
  Transmission Date: 20211014
  Serious: Yes (Hospitalization)
  Sender: FDA-Public Use
  Company Number: KR-CELGENEUS-KOR-20210900903

PATIENT
  Age: 50 Year
  Sex: Male
  Weight: 75.7 kg

DRUGS (25)
  1. FLUCONAZOLE. [Concomitant]
     Active Substance: FLUCONAZOLE
     Indication: INFECTION PROPHYLAXIS
     Dosage: 400 MILLIGRAM
     Route: 048
     Dates: start: 20210804, end: 20210822
  2. LEVAN H OINT [Concomitant]
     Indication: HAEMORRHOIDS
  3. POTASSIUM PHOSPHATE MONOBASIC [Concomitant]
     Active Substance: POTASSIUM PHOSPHATE, MONOBASIC
     Indication: ELECTROLYTE IMBALANCE
  4. CILTACABTAGENE AUTOLEUCEL. [Suspect]
     Active Substance: CILTACABTAGENE AUTOLEUCEL
     Indication: PLASMA CELL MYELOMA
     Dosage: 0.7 X10^6
     Route: 041
     Dates: start: 20210802, end: 20210802
  5. DARATUMUMAB [Suspect]
     Active Substance: DARATUMUMAB
     Indication: PLASMA CELL MYELOMA
     Dosage: 1800 MILLIGRAM
     Route: 058
     Dates: start: 20210611, end: 20210706
  6. ZOLPIDEM [Concomitant]
     Active Substance: ZOLPIDEM TARTRATE
     Indication: INSOMNIA
     Dosage: 10 MILLIGRAM
     Route: 048
     Dates: start: 20210809, end: 20210810
  7. TRIMETHOPRIM/SULFAMETHOXAZOLE [Concomitant]
     Active Substance: SULFAMETHOXAZOLE\TRIMETHOPRIM
     Indication: INFECTION PROPHYLAXIS
     Dosage: 400/80 MG
     Route: 048
     Dates: start: 20210816
  8. LEVOFLOXACIN. [Concomitant]
     Active Substance: LEVOFLOXACIN
     Indication: INFECTION PROPHYLAXIS
     Dosage: 500 MILLIGRAM
     Route: 048
     Dates: start: 20210804, end: 20210822
  9. CEFEPIME [Concomitant]
     Active Substance: CEFEPIME HYDROCHLORIDE
     Indication: INFECTION PROPHYLAXIS
     Dosage: 2 MILLIGRAM
     Route: 041
     Dates: start: 20210807, end: 20210816
  10. CYCLOPHOSPHAMIDE. [Concomitant]
     Active Substance: CYCLOPHOSPHAMIDE
     Indication: PLASMA CELL MYELOMA
     Route: 041
  11. POTASSIUM CHLORIDE. [Concomitant]
     Active Substance: POTASSIUM CHLORIDE
     Indication: PROPHYLAXIS
     Dosage: 1800 MILLIGRAM
     Route: 048
     Dates: start: 20210810, end: 20210810
  12. POTASSIUM CHLORIDE. [Concomitant]
     Active Substance: POTASSIUM CHLORIDE
     Indication: ELECTROLYTE IMBALANCE
  13. OXYCODONE [Concomitant]
     Active Substance: OXYCODONE
     Indication: BACK PAIN
     Route: 048
     Dates: start: 20210630, end: 20210810
  14. DEXAMETHASONE. [Suspect]
     Active Substance: DEXAMETHASONE
     Indication: PLASMA CELL MYELOMA
     Route: 065
     Dates: start: 20210604, end: 20210620
  15. SMOFKABIVEN [Concomitant]
     Active Substance: AMINO ACIDS\DEXTROSE\ELECTROLYTES NOS\SOYBEAN OIL
     Indication: DECREASED APPETITE
     Route: 042
     Dates: start: 20210810, end: 20210811
  16. ACICLOVIR [Concomitant]
     Active Substance: ACYCLOVIR
     Indication: ANTIVIRAL PROPHYLAXIS
     Dosage: 400 MILLIGRAM
     Route: 048
     Dates: start: 20210604
  17. LEVAN H OINT [Concomitant]
     Indication: RECTAL ABSCESS
     Route: 054
     Dates: start: 20210811, end: 20210811
  18. POMALIDOMIDE [Suspect]
     Active Substance: POMALIDOMIDE
     Indication: PLASMA CELL MYELOMA
     Dosage: 4 MILLIGRAM
     Route: 048
     Dates: start: 20210608, end: 20210610
  19. MEGESTROL [Concomitant]
     Active Substance: MEGESTROL
     Indication: DECREASED APPETITE
     Dosage: 625 MILLIGRAM
     Route: 048
     Dates: start: 20210809, end: 20210813
  20. POTASSIUM PHOSPHATE MONOBASIC [Concomitant]
     Active Substance: POTASSIUM PHOSPHATE, MONOBASIC
     Indication: PROPHYLAXIS
     Route: 042
     Dates: start: 20210811, end: 20210812
  21. FLUDARABINE [Concomitant]
     Active Substance: FLUDARABINE PHOSPHATE
     Indication: PLASMA CELL MYELOMA
     Dosage: 30 MILLIGRAM/SQ. METER
     Route: 041
     Dates: start: 20210728, end: 20210730
  22. ASPRIN [Concomitant]
     Active Substance: ASPIRIN
     Indication: THROMBOSIS PROPHYLAXIS
     Dosage: 100 MILLIGRAM
     Route: 048
     Dates: start: 20210604, end: 20210813
  23. LANSOPRAZOLE. [Concomitant]
     Active Substance: LANSOPRAZOLE
     Indication: GASTRITIS PROPHYLAXIS
     Dosage: 15 MILLIGRAM
     Route: 048
     Dates: start: 20210604, end: 20210813
  24. DIOSMIN/HESPERIDIN [Concomitant]
     Active Substance: DIOSMIN\HESPERIDIN
     Indication: HAEMORRHOIDS
     Dosage: 450/50 MG (1 TOTAL)
     Route: 048
     Dates: start: 20210811, end: 20210811
  25. PANCREATIN/SIMETHICONE [Concomitant]
     Indication: DYSPEPSIA
     Dosage: 40/25/70 MG
     Route: 048
     Dates: start: 20210814, end: 20210822

REACTIONS (1)
  - Hyperferritinaemia [Not Recovered/Not Resolved]

NARRATIVE: CASE EVENT DATE: 20210823
